FAERS Safety Report 13298024 (Version 1)
Quarter: 2017Q1

REPORT INFORMATION
  Report Type: Spontaneous
  Country: US (occurrence: US)
  Receive Date: 20170306
  Receipt Date: 20170306
  Transmission Date: 20170428
  Serious: Yes (Death, Hospitalization, Other)
  Sender: FDA-Public Use
  Company Number: US-ASTELLAS-2017US008106

PATIENT
  Sex: Female

DRUGS (2)
  1. TACROLIMUS. [Suspect]
     Active Substance: TACROLIMUS
     Indication: ENCEPHALOPATHY
  2. TACROLIMUS. [Suspect]
     Active Substance: TACROLIMUS
     Indication: PARANEOPLASTIC NEUROLOGICAL SYNDROME
     Dosage: 0.15 TO 0.30 MG/KG PER DAY, TWICE DAILY (IN TWO DIVIDED DOSES)
     Route: 048

REACTIONS (5)
  - Encephalopathy [Fatal]
  - Mental status changes [Unknown]
  - Pneumonia bacterial [Fatal]
  - Progressive cerebellar degeneration [Fatal]
  - Off label use [Unknown]
